FAERS Safety Report 24577106 (Version 1)
Quarter: 2024Q4

REPORT INFORMATION
  Report Type: Report from Study
  Country: US (occurrence: US)
  Receive Date: 20241104
  Receipt Date: 20241104
  Transmission Date: 20250115
  Serious: Yes (Other)
  Sender: CSL BEHRING
  Company Number: US-BEH-2024167557

PATIENT
  Age: 47 Year
  Sex: Female

DRUGS (2)
  1. PRIVIGEN [Suspect]
     Active Substance: HUMAN IMMUNOGLOBULIN G
     Indication: Crohn^s disease
     Route: 065
  2. PRIVIGEN [Suspect]
     Active Substance: HUMAN IMMUNOGLOBULIN G
     Dosage: UNK
     Route: 065

REACTIONS (35)
  - Palpitations [Not Recovered/Not Resolved]
  - Gallbladder disorder [Not Recovered/Not Resolved]
  - Tremor [Not Recovered/Not Resolved]
  - Arthritis [Not Recovered/Not Resolved]
  - Organ failure [Not Recovered/Not Resolved]
  - Gait inability [Not Recovered/Not Resolved]
  - Gallbladder disorder [Not Recovered/Not Resolved]
  - Chelation therapy [Not Recovered/Not Resolved]
  - Loss of consciousness [Not Recovered/Not Resolved]
  - Psoriatic arthropathy [Unknown]
  - Near death experience [Unknown]
  - Treatment noncompliance [Unknown]
  - Insurance issue [Unknown]
  - Muscular weakness [Unknown]
  - Tremor [Unknown]
  - Fatigue [Unknown]
  - Memory impairment [Unknown]
  - Muscle fatigue [Unknown]
  - Cognitive disorder [Unknown]
  - Mental disorder [Unknown]
  - Personality change [Unknown]
  - Gastritis [Unknown]
  - Off label use [Unknown]
  - Constipation [Unknown]
  - Joint deformity [Unknown]
  - Skin lesion [Unknown]
  - Injury [Unknown]
  - Metabolic disorder [Unknown]
  - Depression [Unknown]
  - Tachycardia [Unknown]
  - Illness [Unknown]
  - Infection [Unknown]
  - Anti-VGCC antibody positive [Unknown]
  - Metabolic disorder [Unknown]
  - Constipation [Unknown]
